FAERS Safety Report 19940929 (Version 3)
Quarter: 2021Q4

REPORT INFORMATION
  Report Type: Spontaneous
  Country: FR (occurrence: FR)
  Receive Date: 20211011
  Receipt Date: 20211105
  Transmission Date: 20220303
  Serious: Yes (Other)
  Sender: FDA-Public Use
  Company Number: FR-ORG100008291-2021000087

PATIENT
  Age: 50 Year
  Sex: Female

DRUGS (3)
  1. TENOFOVIR DISOPROXIL [Suspect]
     Active Substance: TENOFOVIR DISOPROXIL
     Indication: Hepatitis D
     Dosage: 300 MILLIGRAM, QD
  2. PEGYLATED INTERFERON ALPHA NOS [Suspect]
     Active Substance: PEGINTERFERON ALFA-2A OR PEGINTERFERON ALFA-2B
     Indication: Product used for unknown indication
     Dosage: 180 MICROGRAM, QW
  3. BULEVIRTIDE [Suspect]
     Active Substance: BULEVIRTIDE
     Indication: Hepatitis D
     Dosage: 2 MILLIGRAM, QD
     Route: 058
     Dates: start: 202006

REACTIONS (3)
  - Pancytopenia [Unknown]
  - Asthenia [Unknown]
  - Total bile acids increased [Unknown]
